FAERS Safety Report 12525428 (Version 1)
Quarter: 2016Q3

REPORT INFORMATION
  Report Type: Spontaneous
  Country: US (occurrence: US)
  Receive Date: 20160704
  Receipt Date: 20160704
  Transmission Date: 20161109
  Serious: No
  Sender: FDA-Public Use
  Company Number: US-ASTRAZENECA-2016SE60625

PATIENT
  Age: 32039 Day
  Sex: Female
  Weight: 92.1 kg

DRUGS (2)
  1. BYDUREON [Suspect]
     Active Substance: EXENATIDE
     Indication: TYPE 2 DIABETES MELLITUS
     Route: 058
     Dates: start: 20160527
  2. LEVEMIR [Concomitant]
     Active Substance: INSULIN DETEMIR
     Indication: BLOOD GLUCOSE ABNORMAL

REACTIONS (13)
  - Spinal pain [Unknown]
  - Vomiting [Unknown]
  - Blood glucose abnormal [Unknown]
  - Injection site mass [Unknown]
  - Erythema [Unknown]
  - Feeling cold [Unknown]
  - Haemorrhage [Unknown]
  - Feeling abnormal [Unknown]
  - Product use issue [Unknown]
  - Rash [Unknown]
  - Pruritus [Unknown]
  - Rhinorrhoea [Unknown]
  - Tremor [Unknown]

NARRATIVE: CASE EVENT DATE: 20160527
